FAERS Safety Report 12462550 (Version 2)
Quarter: 2016Q2

REPORT INFORMATION
  Report Type: Spontaneous
  Country: ES (occurrence: ES)
  Receive Date: 20160614
  Receipt Date: 20160615
  Transmission Date: 20160815
  Serious: Yes (Other)
  Sender: FDA-Public Use
  Company Number: ES-ROCHE-1773935

PATIENT
  Age: 58 Year
  Sex: Female
  Weight: 74 kg

DRUGS (5)
  1. KADCYLA [Suspect]
     Active Substance: ADO-TRASTUZUMAB EMTANSINE
     Indication: BREAST CANCER METASTATIC
     Route: 042
     Dates: start: 20160301
  2. LORAZEPAM. [Concomitant]
     Active Substance: LORAZEPAM
     Indication: ANXIETY
     Route: 048
     Dates: start: 20140411
  3. PARACETAMOL [Concomitant]
     Active Substance: ACETAMINOPHEN
     Indication: PAIN
     Dosage: AS REQUIRED
     Route: 048
     Dates: start: 20131211
  4. OMEPRAZOLE. [Concomitant]
     Active Substance: OMEPRAZOLE
     Indication: GASTRITIS
     Route: 048
     Dates: start: 20130405
  5. FENTANYL. [Concomitant]
     Active Substance: FENTANYL
     Indication: BONE PAIN
     Route: 058
     Dates: start: 20130730

REACTIONS (1)
  - Platelet aggregation [Recovered/Resolved]

NARRATIVE: CASE EVENT DATE: 20160524
